FAERS Safety Report 19174053 (Version 1)
Quarter: 2021Q2

REPORT INFORMATION
  Report Type: Spontaneous
  Country: US (occurrence: US)
  Receive Date: 20210423
  Receipt Date: 20210423
  Transmission Date: 20210717
  Serious: No
  Sender: FDA-Public Use
  Company Number: US-DRREDDYS-USA/USA/21/0134648

PATIENT
  Age: 13 Year
  Sex: Male

DRUGS (1)
  1. ZENATANE [Suspect]
     Active Substance: ISOTRETINOIN
     Indication: PRODUCT USED FOR UNKNOWN INDICATION
     Dosage: RMA ISSUE DATE: 12/18/2020 2:59:38 PM,2/19/2021 10:59:51 AM,3/23/2021 12:47:45 PM.
     Route: 048

REACTIONS (1)
  - Blood triglycerides increased [Unknown]
